FAERS Safety Report 5934229-8 (Version None)
Quarter: 2008Q4

REPORT INFORMATION
  Report Type: 
  Country: None (occurrence: None)
  Receive Date: 20081029
  Receipt Date: 20081023
  Transmission Date: 20090506
  Serious: Yes (Hospitalization, Other)
  Sender: FDA-Public Use
  Company Number: SE-BRISTOL-MYERS SQUIBB COMPANY-14280242

PATIENT
  Age: 35 Year
  Sex: Male

DRUGS (3)
  1. ABILIFY [Suspect]
     Indication: SCHIZOPHRENIA
     Route: 048
     Dates: start: 20060908, end: 20070202
  2. CLOZAPINE [Suspect]
     Indication: SCHIZOPHRENIA
  3. MOVICOL [Concomitant]

REACTIONS (1)
  - PROCTITIS ULCERATIVE [None]
